FAERS Safety Report 6573984-3 (Version None)
Quarter: 2010Q1

REPORT INFORMATION
  Report Type: 
  Country: None (occurrence: None)
  Receive Date: 20100204
  Receipt Date: 20100204
  Transmission Date: 20100710
  Serious: Yes (Hospitalization)
  Sender: FDA-Public Use
  Company Number: None

PATIENT
  Age: 48 Year
  Sex: Male
  Weight: 90.7194 kg

DRUGS (1)
  1. FLOMAX [Suspect]
     Indication: URINARY RETENTION
     Dosage: 1 CAPSULE DAILY PO
     Route: 048
     Dates: start: 20100104, end: 20100125

REACTIONS (2)
  - ERECTION INCREASED [None]
  - INGUINAL HERNIA [None]
